FAERS Safety Report 11969912 (Version 2)
Quarter: 2016Q1

REPORT INFORMATION
  Report Type: Report from Study
  Country: DK (occurrence: IT)
  Receive Date: 20160128
  Receipt Date: 20160210
  Transmission Date: 20160526
  Serious: Yes (Hospitalization)
  Sender: FDA-Public Use
  Company Number: IT-FRI-1000082343

PATIENT
  Age: 17 Year
  Sex: Male

DRUGS (4)
  1. OLANZAPINE. [Suspect]
     Active Substance: OLANZAPINE
     Indication: PERSONALITY DISORDER
     Dosage: 2.5 MG
     Route: 048
  2. OLANZAPINE. [Suspect]
     Active Substance: OLANZAPINE
     Dosage: OVERDOSE: 9 TABLETS OF 2.5 MG
     Route: 048
     Dates: start: 20151223, end: 20151223
  3. ESCITALOPRAM [Suspect]
     Active Substance: ESCITALOPRAM OXALATE
     Dosage: OVERDOSE: 20 TABLETS OF 10 MG
     Route: 048
     Dates: start: 20151223, end: 20151223
  4. ESCITALOPRAM [Suspect]
     Active Substance: ESCITALOPRAM OXALATE
     Indication: PERSONALITY DISORDER
     Dosage: 10 MG
     Route: 048

REACTIONS (4)
  - Intentional overdose [Recovered/Resolved]
  - Electrocardiogram QT prolonged [Recovered/Resolved]
  - Intentional self-injury [Recovered/Resolved]
  - Product use issue [Recovered/Resolved]

NARRATIVE: CASE EVENT DATE: 20151224
